FAERS Safety Report 6102395-X (Version None)
Quarter: 2009Q1

REPORT INFORMATION
  Report Type: 
  Country: None (occurrence: None)
  Receive Date: 20090227
  Receipt Date: 20080625
  Transmission Date: 20090719
  Serious: Yes (Other)
  Sender: FDA-Public Use
  Company Number: 572379

PATIENT
  Age: 44 Year
  Sex: Male

DRUGS (1)
  1. ACCUTANE [Suspect]
     Indication: ACNE CYSTIC
     Dosage: 40 MG 2 PER DAY
     Dates: start: 20080301, end: 20080624

REACTIONS (1)
  - BLOOD TRIGLYCERIDES INCREASED [None]
